FAERS Safety Report 5251686-3 (Version None)
Quarter: 2007Q1

REPORT INFORMATION
  Report Type: 
  Country: None (occurrence: None)
  Receive Date: 20070228
  Receipt Date: 20061011
  Transmission Date: 20070707
  Serious: No
  Sender: FDA-Public Use
  Company Number: US-GLAXOSMITHKLINE-A0623256A

PATIENT
  Age: 50 Year
  Sex: Male

DRUGS (7)
  1. LAMICTAL [Suspect]
     Indication: DRUG USE FOR UNKNOWN INDICATION
     Dosage: 75MG PER DAY
     Route: 048
  2. ATIVAN [Concomitant]
  3. LISINOPRIL [Concomitant]
  4. BENADRYL [Concomitant]
  5. ZOCOR [Concomitant]
  6. PREVACID [Concomitant]
  7. DEPAKOTE [Concomitant]

REACTIONS (1)
  - EJACULATION DISORDER [None]
